FAERS Safety Report 7598405-3 (Version None)
Quarter: 2011Q3

REPORT INFORMATION
  Report Type: 
  Country: None (occurrence: None)
  Receive Date: 20110708
  Receipt Date: 20110630
  Transmission Date: 20111222
  Serious: Yes (Hospitalization, Other)
  Sender: FDA-Public Use
  Company Number: CA-ABBOTT-11P-028-0712509-02

PATIENT
  Sex: Female

DRUGS (23)
  1. HUMIRA [Suspect]
     Route: 058
  2. AMOXICILLIN AND CLAVULANATE POTASSIUM [Concomitant]
     Dates: start: 20110219, end: 20110228
  3. HUMIRA [Suspect]
     Route: 058
     Dates: start: 20110324
  4. LOPERAMIDE [Concomitant]
     Indication: COLECTOMY
  5. FERROUS SULFATE TAB [Concomitant]
     Indication: IRON DEFICIENCY
     Route: 048
     Dates: start: 20101228
  6. AQUACEL AG [Concomitant]
     Indication: WOUND INFECTION
     Dosage: 1 DRESSING
     Dates: start: 20110219, end: 20110401
  7. PREDNISONE [Concomitant]
     Indication: CROHN'S DISEASE
     Dosage: TAPERING DOSE
     Route: 048
  8. ACETAMINOPHEN [Concomitant]
     Indication: ABDOMINAL OPERATION
     Dosage: 2-325MG TABLETS EVERY 4-6 HOURS AS NEEDED
     Dates: start: 20101222
  9. POTASSIUM CHLORIDE [Concomitant]
     Indication: DEHYDRATION
     Dosage: 20MMOLES/1000ML IN CONTINUE AT 60ML/HOUR
     Dates: start: 20110213, end: 20110218
  10. ACETAMINOPHEN [Concomitant]
     Indication: HEADACHE
     Dates: start: 20090913
  11. AMOXICILLIN AND CLAVULANATE POTASSIUM [Concomitant]
     Indication: PERITONITIS BACTERIAL
     Route: 048
     Dates: start: 20110114
  12. DILAUDID [Concomitant]
     Indication: ABDOMINAL PAIN
     Dosage: 1-1.5MG EVERY 3 OR 4 HOURS AS NEEDED
     Route: 058
     Dates: start: 20110213, end: 20110218
  13. DILAUDID [Concomitant]
     Indication: WOUND INFECTION
     Dosage: 1 TO 2 TABLETS EVERY 3 TO 4 HOURS AS NEEDED
     Route: 048
     Dates: start: 20110218, end: 20110314
  14. HUMIRA [Suspect]
     Route: 058
     Dates: start: 20110310, end: 20110310
  15. PROTYLOL [Concomitant]
     Indication: ABDOMINAL PAIN
     Route: 048
     Dates: start: 20091130
  16. AMOXICILLIN AND CLAVULANATE POTASSIUM [Concomitant]
     Indication: WOUND INFECTION
     Route: 048
     Dates: start: 20110218, end: 20110219
  17. AMOXICILLIN AND CLAVULANATE POTASSIUM [Concomitant]
     Route: 048
     Dates: start: 20110305, end: 20110315
  18. VITAMIN D [Concomitant]
     Indication: PROPHYLAXIS
     Route: 048
     Dates: start: 20101223
  19. VITAMIN D [Concomitant]
     Indication: CROHN'S DISEASE
  20. MEROPENEM [Concomitant]
     Indication: POST PROCEDURAL INFECTION
     Route: 042
     Dates: start: 20110213, end: 20110218
  21. HUMIRA [Suspect]
     Route: 058
     Dates: end: 20101206
  22. LOPERAMIDE [Concomitant]
     Indication: POST PROCEDURAL DIARRHOEA
     Route: 048
     Dates: start: 20000901
  23. HUMIRA [Suspect]
     Indication: CROHN'S DISEASE
     Route: 058
     Dates: start: 20090817, end: 20090817

REACTIONS (2)
  - CROHN'S DISEASE [None]
  - SMALL INTESTINAL OBSTRUCTION [None]
